FAERS Safety Report 5911295-7 (Version None)
Quarter: 2008Q4

REPORT INFORMATION
  Report Type: 
  Country: None (occurrence: None)
  Receive Date: 20081007
  Receipt Date: 20080912
  Transmission Date: 20090506
  Serious: No
  Sender: FDA-Public Use
  Company Number: US-B.I. PHARMACEUTICALS,INC./RIDGEFIELD-2006-BP-13106BP

PATIENT
  Sex: Male
  Weight: 79 kg

DRUGS (3)
  1. MIRAPEX [Suspect]
     Indication: PARKINSON'S DISEASE
     Route: 048
     Dates: start: 19980928, end: 20001001
  2. SINEMET [Concomitant]
     Indication: PARKINSON'S DISEASE
     Dates: start: 19980729
  3. NAPROSYN [Concomitant]
     Dates: start: 19971223

REACTIONS (7)
  - ANXIETY [None]
  - DEPRESSION [None]
  - NAUSEA [None]
  - OBSESSIVE-COMPULSIVE DISORDER [None]
  - OEDEMA PERIPHERAL [None]
  - PATHOLOGICAL GAMBLING [None]
  - VOMITING [None]
